FAERS Safety Report 9494081 (Version 1)
Quarter: 2013Q3

REPORT INFORMATION
  Report Type: Spontaneous
  Country: AU (occurrence: None)
  Receive Date: 20130827
  Receipt Date: 20130827
  Transmission Date: 20140515
  Serious: Yes (Hospitalization, Other)
  Sender: FDA-Public Use
  Company Number: 2013P1003304

PATIENT
  Age: 73 Year
  Sex: Female

DRUGS (3)
  1. FLECAINIDE [Suspect]
     Indication: ATRIAL FIBRILLATION
  2. OMEPRAZOLE [Concomitant]
  3. METOPROLOL [Concomitant]

REACTIONS (3)
  - Neutropenia [None]
  - Transient ischaemic attack [None]
  - White blood cell count decreased [None]
